FAERS Safety Report 10077024 (Version 1)
Quarter: 2014Q2

REPORT INFORMATION
  Report Type: Spontaneous
  Country: ES (occurrence: ES)
  Receive Date: 20140414
  Receipt Date: 20140414
  Transmission Date: 20141212
  Serious: Yes (Hospitalization)
  Sender: FDA-Public Use
  Company Number: ES-PFIZER INC-2014102740

PATIENT
  Age: 66 Year
  Sex: Female

DRUGS (7)
  1. ALDACTONE [Suspect]
     Indication: CARDIAC FAILURE CONGESTIVE
     Dosage: 100 MG, 1X/DAY
     Route: 048
     Dates: start: 2010, end: 20130712
  2. FUROSEMIDE [Interacting]
     Indication: CARDIAC FAILURE CONGESTIVE
     Dosage: UNK
     Route: 048
     Dates: start: 2012, end: 20130712
  3. HIGROTONA [Interacting]
     Indication: CARDIAC FAILURE CONGESTIVE
     Dosage: 25 MG, 1X/DAY
     Route: 048
     Dates: start: 20130703, end: 20130712
  4. NOLOTIL /SPA/ [Interacting]
     Indication: PAIN
     Dosage: 575 MG, 3X/DAY
     Route: 048
     Dates: start: 2012, end: 20130712
  5. PARACETAMOL [Concomitant]
     Indication: PAIN
     Dosage: 1 G, 1X/DAY
     Route: 048
     Dates: start: 2012, end: 20130712
  6. LANIRAPID [Concomitant]
     Indication: ATRIAL FIBRILLATION
     Dosage: 0.1 MG, 1X/DAY
     Route: 048
     Dates: start: 2012
  7. SINTROM [Concomitant]
     Indication: VALVULOPLASTY CARDIAC
     Dosage: UNK
     Route: 048
     Dates: start: 2012

REACTIONS (3)
  - Drug interaction [Recovered/Resolved]
  - Anuria [Recovered/Resolved]
  - Renal failure acute [Recovered/Resolved]
